FAERS Safety Report 19263161 (Version 1)
Quarter: 2021Q2

REPORT INFORMATION
  Report Type: Spontaneous
  Country: GB (occurrence: GB)
  Receive Date: 20210517
  Receipt Date: 20210517
  Transmission Date: 20210717
  Serious: No
  Sender: FDA-Public Use
  Company Number: GB-ALKEM LABORATORIES LIMITED-GB-ALKEM-2021-01066

PATIENT

DRUGS (10)
  1. BUDESONIDE. [Concomitant]
     Active Substance: BUDESONIDE
     Indication: ILL-DEFINED DISORDER
     Dosage: TWO CAPSULES (6MG) FOR ONE MONTH THEN ONE CAPSU...
     Route: 065
     Dates: start: 20201112, end: 20201210
  2. IBUPROFEN. [Concomitant]
     Active Substance: IBUPROFEN
     Indication: ILL-DEFINED DISORDER
     Dosage: TAKE ONE TO TWO TABLETS WITH OR JUST AFTER FOOD...
     Route: 065
     Dates: start: 20200617
  3. OMEPRAZOLE. [Concomitant]
     Active Substance: OMEPRAZOLE
     Indication: ILL-DEFINED DISORDER
     Dosage: TAKE ONE CAPSULE ONCE A DAY.
     Route: 065
     Dates: start: 20200617
  4. PREGABALIN. [Suspect]
     Active Substance: PREGABALIN
     Dosage: UNK
     Route: 065
     Dates: start: 20210205
  5. LOPERAMIDE [Concomitant]
     Active Substance: LOPERAMIDE
     Indication: ILL-DEFINED DISORDER
     Dosage: TAKE AS REQUIRED UP TO EIGHT TABLETS PER DAY.
     Route: 065
     Dates: start: 20201106
  6. SALBUTAMOL [Concomitant]
     Active Substance: ALBUTEROL
     Indication: ILL-DEFINED DISORDER
     Dosage: INHALE 2 DOSES AS NEEDED
     Route: 065
     Dates: start: 20200213
  7. PARACETAMOL [Concomitant]
     Active Substance: ACETAMINOPHEN
     Indication: ILL-DEFINED DISORDER
     Dosage: TAKE ONE OR TWO TABLETS EVERY FOUR TO SIX HOURS...
     Route: 065
     Dates: start: 20200407
  8. FAMOTIDINE. [Concomitant]
     Active Substance: FAMOTIDINE
     Indication: ILL-DEFINED DISORDER
     Dosage: TAKE ONE TABLET IN THE MORNING
     Route: 065
     Dates: start: 20201102
  9. PREGABALIN. [Suspect]
     Active Substance: PREGABALIN
     Indication: ILL-DEFINED DISORDER
     Dosage: TAKE ONE CAPSULE TWICE A DAY
     Route: 065
     Dates: start: 20210202
  10. OXELTRA [Concomitant]
     Indication: ILL-DEFINED DISORDER
     Dosage: TAKE ONE EVERY 12 HRS
     Route: 065
     Dates: start: 20210112

REACTIONS (1)
  - Hallucination [Recovered/Resolved]

NARRATIVE: CASE EVENT DATE: 20210205
